APPROVED DRUG PRODUCT: CLEVIPREX
Active Ingredient: CLEVIDIPINE
Strength: 25MG/50ML (0.5MG/ML)
Dosage Form/Route: EMULSION;INTRAVENOUS
Application: N022156 | Product #001
Applicant: CHIESI USA INC
Approved: Aug 1, 2008 | RLD: Yes | RS: Yes | Type: RX

PATENTS:
Patent 8658676 | Expires: Oct 10, 2031
Patent 10010537 | Expires: Oct 10, 2031
Patent 11103490 | Expires: Oct 10, 2031